FAERS Safety Report 6864396-3 (Version None)
Quarter: 2010Q3

REPORT INFORMATION
  Report Type: 
  Country: None (occurrence: None)
  Receive Date: 20100721
  Receipt Date: 20080430
  Transmission Date: 20110219
  Serious: Yes (Other)
  Sender: FDA-Public Use
  Company Number: US-PFIZER INC-2008026323

PATIENT
  Sex: Female
  Weight: 96.2 kg

DRUGS (9)
  1. CHANTIX [Suspect]
     Indication: EX-TOBACCO USER
     Route: 048
     Dates: start: 20070405, end: 20070501
  2. ZANAFLEX [Concomitant]
  3. METHADONE HCL [Concomitant]
  4. GABAPENTIN [Concomitant]
  5. SERTRALINE HCL [Concomitant]
  6. MONTELUKAST SODIUM [Concomitant]
  7. ADVAIR DISKUS 100/50 [Concomitant]
  8. ALBUTEROL [Concomitant]
  9. ATROVENT [Concomitant]

REACTIONS (1)
  - SUICIDAL IDEATION [None]
